FAERS Safety Report 25147373 (Version 3)
Quarter: 2025Q2

REPORT INFORMATION
  Report Type: Spontaneous
  Country: US (occurrence: US)
  Receive Date: 20250401
  Receipt Date: 20250508
  Transmission Date: 20250716
  Serious: No
  Sender: BEIGENE
  Company Number: US-BEIGENE-BGN-2025-005030

PATIENT
  Age: 64 Year

DRUGS (2)
  1. BRUKINSA [Suspect]
     Active Substance: ZANUBRUTINIB
     Indication: Product used for unknown indication
  2. CYCLOPHOSPHAMIDE [Concomitant]
     Active Substance: CYCLOPHOSPHAMIDE

REACTIONS (1)
  - Rash [Unknown]
